FAERS Safety Report 8707459 (Version 2)
Quarter: 2013Q4

REPORT INFORMATION
  Report Type: Spontaneous
  Country: JP (occurrence: JP)
  Receive Date: 20120804
  Receipt Date: 20131108
  Transmission Date: 20140711
  Serious: Yes (Life-Threatening, Hospitalization, Other)
  Sender: FDA-Public Use
  Company Number: JP-009507513-2009SP020576

PATIENT
  Age: 79 Year
  Sex: Male
  Weight: 63 kg

DRUGS (5)
  1. ESLAX [Suspect]
     Indication: NEUROMUSCULAR BLOCKING THERAPY
     Dosage: 50 MG, UNK
     Route: 040
     Dates: start: 20090707, end: 20090707
  2. PROPOFOL MARUISHI [Suspect]
     Indication: ANAESTHESIA PROCEDURE
     Route: 042
     Dates: start: 20090707, end: 20090707
  3. FENTANYL [Suspect]
     Indication: PRODUCT USED FOR UNKNOWN INDICATION
     Route: 008
     Dates: start: 200907, end: 200907
  4. ULTIVA [Concomitant]
     Indication: ANAESTHESIA PROCEDURE
     Route: 042
     Dates: start: 20090707, end: 20090707
  5. CEFAMEZIN [Concomitant]
     Indication: PRODUCT USED FOR UNKNOWN INDICATION
     Dosage: 10 MG, UNK
     Route: 042
     Dates: start: 20090707, end: 20090707

REACTIONS (2)
  - Anaphylactic shock [Recovered/Resolved]
  - Ventricular fibrillation [Recovered/Resolved]
